FAERS Safety Report 7496035-5 (Version None)
Quarter: 2011Q2

REPORT INFORMATION
  Report Type: 
  Country: None (occurrence: None)
  Receive Date: 20110513
  Receipt Date: 20110503
  Transmission Date: 20111010
  Serious: Yes (Other)
  Sender: FDA-Public Use
  Company Number: MIN-00721

PATIENT
  Age: 15 Year
  Sex: Female

DRUGS (1)
  1. MINOCYCLINE HCL [Suspect]
     Indication: ACNE

REACTIONS (2)
  - BENIGN INTRACRANIAL HYPERTENSION [None]
  - MUSCLE SPASMS [None]
